FAERS Safety Report 13710274 (Version 3)
Quarter: 2017Q4

REPORT INFORMATION
  Report Type: Spontaneous
  Country: IL (occurrence: IL)
  Receive Date: 20170703
  Receipt Date: 20171214
  Transmission Date: 20180320
  Serious: Yes (Other)
  Sender: FDA-Public Use
  Company Number: IL-TEVA-781165ACC

PATIENT
  Age: 69 Year
  Sex: Female

DRUGS (1)
  1. ZOLEDRONIC ACID [Suspect]
     Active Substance: ZOLEDRONIC ACID
     Indication: OSTEOPOROSIS
     Route: 042

REACTIONS (5)
  - Pain in extremity [Unknown]
  - Myalgia [Unknown]
  - Autoinflammatory disease [Unknown]
  - Hypokinesia [Unknown]
  - Polymyalgia rheumatica [Unknown]
